FAERS Safety Report 25503767 (Version 1)
Quarter: 2025Q3

REPORT INFORMATION
  Report Type: Spontaneous
  Country: CN (occurrence: CN)
  Receive Date: 20250702
  Receipt Date: 20250702
  Transmission Date: 20251020
  Serious: Yes (Hospitalization, Other)
  Sender: AZURITY PHARMACEUTICALS
  Company Number: CN-AZURITY PHARMACEUTICALS, INC.-AZR202506-001735

PATIENT
  Age: 59 Year
  Sex: Female

DRUGS (20)
  1. METHYLPREDNISOLONE ACETATE [Suspect]
     Active Substance: METHYLPREDNISOLONE ACETATE
     Indication: Immunomodulatory therapy
     Dosage: 40 MILLIGRAM, DAILY (FOR 5 DAYS)
     Route: 042
  2. METHYLPREDNISOLONE ACETATE [Suspect]
     Active Substance: METHYLPREDNISOLONE ACETATE
     Route: 042
  3. METHYLPREDNISOLONE ACETATE [Suspect]
     Active Substance: METHYLPREDNISOLONE ACETATE
     Dosage: 40 MILLIGRAM, DAILY (TAPERED (DAY 6-10))
     Route: 042
  4. METHYLPREDNISOLONE ACETATE [Suspect]
     Active Substance: METHYLPREDNISOLONE ACETATE
     Route: 042
  5. METHYLPREDNISOLONE ACETATE [Suspect]
     Active Substance: METHYLPREDNISOLONE ACETATE
     Route: 042
  6. METHYLPREDNISOLONE ACETATE [Suspect]
     Active Substance: METHYLPREDNISOLONE ACETATE
     Route: 042
  7. MYCOPHENOLATE MOFETIL [Suspect]
     Active Substance: MYCOPHENOLATE MOFETIL
     Indication: Immunomodulatory therapy
     Route: 065
  8. MOXIFLOXACIN [Concomitant]
     Active Substance: MOXIFLOXACIN
     Indication: Anti-infective therapy
     Dosage: 400 MILLIGRAM, DAILY (5 DAYS)
     Route: 042
  9. MOXIFLOXACIN [Concomitant]
     Active Substance: MOXIFLOXACIN
     Route: 042
  10. PERAMIVIR [Concomitant]
     Active Substance: PERAMIVIR
     Indication: Antiviral treatment
     Dosage: 0.3 GRAM, DAILY (FOR 5 DAYS)
     Route: 042
  11. PANTOPRAZOLE [Concomitant]
     Active Substance: PANTOPRAZOLE
     Indication: Gastrointestinal disorder
     Dosage: 40 MILLIGRAM, DAILY
     Route: 042
  12. MOSAPRIDE [Concomitant]
     Active Substance: MOSAPRIDE
     Indication: Gastrointestinal disorder
     Route: 048
  13. SMZ-co [Concomitant]
     Indication: Antibiotic prophylaxis
  14. FLUCONAZOLE [Concomitant]
     Active Substance: FLUCONAZOLE
     Indication: Antifungal treatment
     Route: 065
  15. TOFACITINIB [Concomitant]
     Active Substance: TOFACITINIB
     Indication: Product used for unknown indication
     Route: 065
  16. TOCILIZUMAB [Concomitant]
     Active Substance: TOCILIZUMAB
     Indication: Hyperferritinaemia
     Dosage: 8MG/KG EVERY TWO WEEKS
     Route: 042
  17. Immunoglobulin [Concomitant]
     Indication: Adjuvant therapy
     Route: 065
  18. Immunoglobulin [Concomitant]
     Dosage: 10 GRAM, 4W
     Route: 042
  19. TACROLIMUS [Concomitant]
     Active Substance: TACROLIMUS
     Indication: Immunosuppression
     Route: 065
  20. TACROLIMUS [Concomitant]
     Active Substance: TACROLIMUS
     Dosage: 0.5 MILLIGRAM, DAILY
     Route: 065

REACTIONS (7)
  - Coagulopathy [Recovering/Resolving]
  - Hyperkalaemia [Recovering/Resolving]
  - Thrombocytopenia [Recovering/Resolving]
  - Opportunistic infection [Recovering/Resolving]
  - Cytomegalovirus infection [Recovering/Resolving]
  - Sepsis [Recovering/Resolving]
  - Hyperglycaemia [Recovering/Resolving]
